FAERS Safety Report 8541569-5 (Version None)
Quarter: 2012Q3

REPORT INFORMATION
  Report Type: 
  Country: None (occurrence: None)
  Receive Date: 20120726
  Receipt Date: 20120507
  Transmission Date: 20120928
  Serious: No
  Sender: FDA-Public Use
  Company Number: US-MUTUAL PHARMACEUTICAL COMPANY, INC.-CLHC20120033

PATIENT
  Sex: Male
  Weight: 77.18 kg

DRUGS (3)
  1. COLCHICINE [Suspect]
     Route: 048
  2. COLCHICINE [Suspect]
     Indication: GOUT
     Route: 048
     Dates: start: 20110501, end: 20110501
  3. ALLOPURINOL [Concomitant]
     Indication: GOUT
     Route: 048
     Dates: start: 20100101

REACTIONS (2)
  - BREATH ALCOHOL TEST POSITIVE [None]
  - DRUG INEFFECTIVE [None]
